FAERS Safety Report 16064442 (Version 1)
Quarter: 2019Q1

REPORT INFORMATION
  Report Type: Report from Study
  Country: US (occurrence: US)
  Receive Date: 20190312
  Receipt Date: 20190312
  Transmission Date: 20190418
  Serious: Yes (Hospitalization)
  Sender: FDA-Public Use
  Company Number: US-EISAI MEDICAL RESEARCH-EC-2018-046652

PATIENT
  Age: 47 Year
  Sex: Female

DRUGS (25)
  1. AMLODIPINE [Concomitant]
     Active Substance: AMLODIPINE BESYLATE
  2. PERCOCET [Concomitant]
     Active Substance: ACETAMINOPHEN\OXYCODONE HYDROCHLORIDE
  3. PREVACID [Concomitant]
     Active Substance: LANSOPRAZOLE
  4. ATORVASTATIN CALCIUM. [Concomitant]
     Active Substance: ATORVASTATIN CALCIUM
  5. ONDANSETRON [Concomitant]
     Active Substance: ONDANSETRON
  6. LENVIMA [Suspect]
     Active Substance: LENVATINIB
     Route: 048
  7. LISINOPRIL-HCTZ [Concomitant]
     Active Substance: HYDROCHLOROTHIAZIDE\LISINOPRIL
  8. GLIPIZIDE. [Concomitant]
     Active Substance: GLIPIZIDE
  9. PAROXETINE. [Concomitant]
     Active Substance: PAROXETINE
  10. LENVIMA [Suspect]
     Active Substance: LENVATINIB
     Route: 048
     Dates: start: 201812
  11. NAPROXEN. [Concomitant]
     Active Substance: NAPROXEN
  12. FENTANYL. [Concomitant]
     Active Substance: FENTANYL
  13. JENTADUETO-XR [Concomitant]
  14. AFLURIA NOS [Concomitant]
     Active Substance: INFLUENZA VIRUS VACCINE TRIVALENT TYPE A+B AFLURIA
  15. LENVIMA [Suspect]
     Active Substance: LENVATINIB
     Indication: ADENOID CYSTIC CARCINOMA
     Route: 048
     Dates: start: 20181012, end: 201812
  16. LENVIMA [Suspect]
     Active Substance: LENVATINIB
     Dosage: DECREASED DOSE
     Route: 048
     Dates: end: 201902
  17. LORAZEPAM. [Concomitant]
     Active Substance: LORAZEPAM
  18. SERTRALINE [Concomitant]
     Active Substance: SERTRALINE HYDROCHLORIDE
  19. ZOLPIDEM [Concomitant]
     Active Substance: ZOLPIDEM\ZOLPIDEM TARTRATE
  20. TRAZODONE [Concomitant]
     Active Substance: TRAZODONE HYDROCHLORIDE
  21. HYDROCHLOROTHIAZIDE. [Concomitant]
     Active Substance: HYDROCHLOROTHIAZIDE
  22. METFORMIN [Concomitant]
     Active Substance: METFORMIN HYDROCHLORIDE
  23. PAXIL [Concomitant]
     Active Substance: PAROXETINE HYDROCHLORIDE
  24. ESCITALOPRAM [Concomitant]
     Active Substance: ESCITALOPRAM OXALATE
  25. VALSARTAN. [Concomitant]
     Active Substance: VALSARTAN

REACTIONS (9)
  - Oral pain [Not Recovered/Not Resolved]
  - Menstrual disorder [Not Recovered/Not Resolved]
  - Arthralgia [Recovered/Resolved]
  - Chest pain [Recovered/Resolved]
  - Blood pressure increased [Recovered/Resolved]
  - Diarrhoea [Not Recovered/Not Resolved]
  - Fatigue [Not Recovered/Not Resolved]
  - Abdominal discomfort [Not Recovered/Not Resolved]
  - Myalgia [Recovered/Resolved]

NARRATIVE: CASE EVENT DATE: 2018
